FAERS Safety Report 4294688-6 (Version None)
Quarter: 2004Q1

REPORT INFORMATION
  Report Type: 
  Country: None (occurrence: None)
  Receive Date: 20040213
  Receipt Date: 20040205
  Transmission Date: 20041129
  Serious: Yes (Hospitalization)
  Sender: FDA-Public Use
  Company Number: FR-BRISTOL-MYERS SQUIBB COMPANY-12498143

PATIENT
  Age: 37 Year
  Sex: Female

DRUGS (6)
  1. EFFERALGAN [Suspect]
     Route: 048
     Dates: start: 20030812, end: 20030816
  2. ACETYLCYSTEINE [Suspect]
     Route: 048
     Dates: start: 20030812, end: 20030816
  3. TOPLEXIL [Suspect]
     Route: 048
     Dates: start: 20030812, end: 20030813
  4. ADVIL [Suspect]
     Route: 048
     Dates: start: 20030811, end: 20030811
  5. BRONKIREX [Suspect]
     Route: 048
     Dates: start: 20030811, end: 20030811
  6. ORELOX [Suspect]
     Route: 048
     Dates: start: 20030812, end: 20030813

REACTIONS (2)
  - DERMATITIS EXFOLIATIVE [None]
  - RASH MACULO-PAPULAR [None]
